FAERS Safety Report 12583529 (Version 6)
Quarter: 2017Q1

REPORT INFORMATION
  Report Type: Spontaneous
  Country: JP (occurrence: JP)
  Receive Date: 20160722
  Receipt Date: 20170111
  Transmission Date: 20170428
  Serious: Yes (Hospitalization)
  Sender: FDA-Public Use
  Company Number: JP-EISAI MEDICAL RESEARCH-EC-2016-018824

PATIENT
  Age: 48 Year
  Sex: Female

DRUGS (8)
  1. NOBELBAR [Suspect]
     Active Substance: PHENOBARBITAL SODIUM
     Indication: EPILEPSY
     Dosage: UNKNOWN
     Route: 051
     Dates: start: 201606, end: 20160808
  2. E KEPPRA [Suspect]
     Active Substance: LEVETIRACETAM
     Indication: EPILEPSY
     Dosage: UNKNOWN
     Route: 051
     Dates: start: 201606, end: 20160801
  3. PROPOFOL. [Suspect]
     Active Substance: PROPOFOL
     Indication: STATUS EPILEPTICUS
     Dosage: UNKNOWN
     Route: 041
     Dates: start: 201606
  4. VANCOMYCIN [Suspect]
     Active Substance: VANCOMYCIN
     Indication: CELLULITIS
     Dosage: UNKNOWN
     Route: 041
     Dates: start: 201606
  5. FYCOMPA [Suspect]
     Active Substance: PERAMPANEL
     Indication: EPILEPSY
     Route: 050
     Dates: start: 20160714, end: 20160719
  6. MIDAZOLAM [Suspect]
     Active Substance: MIDAZOLAM HYDROCHLORIDE
     Indication: STATUS EPILEPTICUS
     Dosage: UNKNOWN
     Route: 041
     Dates: start: 201606
  7. ZOSYN [Suspect]
     Active Substance: PIPERACILLIN SODIUM\TAZOBACTAM SODIUM
     Indication: CELLULITIS
     Dosage: UNKNOWN
     Route: 041
     Dates: start: 201606
  8. ISOZOL [Suspect]
     Active Substance: THIAMYLAL SODIUM
     Indication: STATUS EPILEPTICUS
     Dosage: UNKNOWN
     Route: 041
     Dates: start: 201606

REACTIONS (1)
  - Drug eruption [Recovering/Resolving]

NARRATIVE: CASE EVENT DATE: 20160714
